FAERS Safety Report 7927038-1 (Version None)
Quarter: 2011Q4

REPORT INFORMATION
  Report Type: 
  Country: None (occurrence: None)
  Receive Date: 20111118
  Receipt Date: 20111110
  Transmission Date: 20120403
  Serious: Yes (Hospitalization)
  Sender: FDA-Public Use
  Company Number: MX-BRISTOL-MYERS SQUIBB COMPANY-16229601

PATIENT
  Age: 50 Year
  Sex: Male

DRUGS (1)
  1. IRBESARTAN AND HYDROCHLOROTHIAZIDE [Suspect]
     Route: 048

REACTIONS (1)
  - SURGERY [None]
